FAERS Safety Report 9972381 (Version 1)
Quarter: 2014Q1

REPORT INFORMATION
  Report Type: Report from Study
  Country: US (occurrence: US)
  Receive Date: 20140306
  Receipt Date: 20140306
  Transmission Date: 20141002
  Serious: No
  Sender: FDA-Public Use
  Company Number: US-ABBVIE-13P-163-1148800-00

PATIENT
  Age: 68 Year
  Sex: 0

DRUGS (3)
  1. HUMIRA [Suspect]
     Indication: PSORIATIC ARTHROPATHY
     Route: 058
  2. TRICOR [Suspect]
     Indication: BLOOD TRIGLYCERIDES INCREASED
  3. LIPITOR [Concomitant]
     Indication: BLOOD CHOLESTEROL INCREASED

REACTIONS (5)
  - Wrong technique in drug usage process [Unknown]
  - Incorrect dose administered [Unknown]
  - Injection site pain [Recovered/Resolved]
  - Injection site pain [Unknown]
  - Feeling abnormal [Unknown]
